FAERS Safety Report 10128246 (Version 1)
Quarter: 2014Q2

REPORT INFORMATION
  Report Type: Spontaneous
  Country: US (occurrence: US)
  Receive Date: 20140428
  Receipt Date: 20140428
  Transmission Date: 20141212
  Serious: No
  Sender: FDA-Public Use
  Company Number: US-BIOGENIDEC-2014BI035940

PATIENT
  Age: 63 Year
  Sex: Female

DRUGS (9)
  1. TECFIDERA [Suspect]
     Indication: MULTIPLE SCLEROSIS
     Route: 048
     Dates: start: 201312
  2. DULCOLAX [Concomitant]
  3. VITAMIN B-12 [Concomitant]
  4. L-LYSINE [Concomitant]
  5. VITAMIN K [Concomitant]
  6. VITAMIN D3 [Concomitant]
  7. MIRALAX [Concomitant]
  8. OMEGA-3 [Concomitant]
  9. FLEXERIL [Concomitant]

REACTIONS (3)
  - Urticaria [Unknown]
  - Rash [Unknown]
  - Erythema [Not Recovered/Not Resolved]
